FAERS Safety Report 6843333-1 (Version None)
Quarter: 2010Q2

REPORT INFORMATION
  Report Type: 
  Country: None (occurrence: None)
  Receive Date: 20100629
  Receipt Date: 20100524
  Transmission Date: 20101027
  Serious: No
  Sender: FDA-Public Use
  Company Number: US-WYE-H15310310

PATIENT

DRUGS (3)
  1. PRISTIQ [Suspect]
  2. EFFEXOR [Suspect]
  3. EFFEXOR XR [Suspect]
     Dosage: 300 MG 1X PER 1 DAY

REACTIONS (3)
  - ANXIETY [None]
  - CONDITION AGGRAVATED [None]
  - DRUG INEFFECTIVE [None]
